FAERS Safety Report 23935733 (Version 3)
Quarter: 2024Q3

REPORT INFORMATION
  Report Type: Spontaneous
  Country: JP (occurrence: JP)
  Receive Date: 20240604
  Receipt Date: 20240703
  Transmission Date: 20241017
  Serious: Yes (Hospitalization)
  Sender: AMGEN
  Company Number: JP-DSJP-DSJ-2024-123434

PATIENT

DRUGS (1)
  1. DENOSUMAB [Suspect]
     Active Substance: DENOSUMAB
     Indication: Osteoporosis
     Dosage: 60 MILLIGRAM, Q6MO
     Route: 058

REACTIONS (1)
  - Atypical fracture [Unknown]
